FAERS Safety Report 4585383-4 (Version None)
Quarter: 2005Q1

REPORT INFORMATION
  Report Type: 
  Country: None (occurrence: None)
  Receive Date: 20050217
  Receipt Date: 20050208
  Transmission Date: 20050727
  Serious: Yes (Other)
  Sender: FDA-Public Use
  Company Number: CH-BRISTOL-MYERS SQUIBB COMPANY-12854766

PATIENT
  Age: 81 Year
  Sex: Female

DRUGS (2)
  1. HYDROXYUREA [Suspect]
     Indication: ESSENTIAL THROMBOCYTHAEMIA
     Dosage: DOSE INCREASED TO 1.5 G/DAY
     Dates: start: 19900101
  2. ACETYLSALICYLIC ACID [Concomitant]
     Indication: ESSENTIAL THROMBOCYTHAEMIA
     Dates: start: 19900101

REACTIONS (2)
  - PERIPHERAL OCCLUSIVE DISEASE [None]
  - SKIN ULCER [None]
